FAERS Safety Report 5730901-3 (Version None)
Quarter: 2008Q2

REPORT INFORMATION
  Report Type: 
  Country: None (occurrence: None)
  Receive Date: 20080507
  Receipt Date: 20080425
  Transmission Date: 20081010
  Serious: Yes (Other)
  Sender: FDA-Public Use
  Company Number: BR-PFIZER INC-2008038333

PATIENT
  Sex: Female
  Weight: 62 kg

DRUGS (2)
  1. DEPO-PROVERA SUSPENSION/INJ [Suspect]
     Indication: CONTRACEPTION
  2. DEPO-PROVERA SUSPENSION/INJ [Suspect]
     Dates: start: 20070201, end: 20070201

REACTIONS (3)
  - AMENORRHOEA [None]
  - OVARIAN CYST [None]
  - WEIGHT INCREASED [None]
